FAERS Safety Report 6290927-0 (Version None)
Quarter: 2009Q3

REPORT INFORMATION
  Report Type: 
  Country: None (occurrence: None)
  Receive Date: 20090728
  Receipt Date: 20090728
  Transmission Date: 20100115
  Serious: No
  Sender: FDA-Public Use
  Company Number: None

PATIENT
  Age: 46 Year
  Sex: Female
  Weight: 79.3795 kg

DRUGS (1)
  1. ZICAM COLD REMEDY GEL SWABS HOMEOPATHIC MATRIXX INITIATIVES, INC. [Suspect]
     Indication: NASOPHARYNGITIS
     Dosage: ONE TUBE, EVERY 4 TO 6 HOURS, NASAL
     Route: 045
     Dates: start: 20081206, end: 20090624

REACTIONS (3)
  - AGEUSIA [None]
  - ANOSMIA [None]
  - DECREASED APPETITE [None]
